FAERS Safety Report 23123789 (Version 1)
Quarter: 2023Q4

REPORT INFORMATION
  Report Type: Report from Study
  Country: MX (occurrence: MX)
  Receive Date: 20231030
  Receipt Date: 20231030
  Transmission Date: 20240109
  Serious: Yes (Hospitalization, Other)
  Sender: FDA-Public Use
  Company Number: MX-BIOGEN-2023BI01232748

PATIENT
  Age: 41 Year
  Sex: Female

DRUGS (1)
  1. TYSABRI [Suspect]
     Active Substance: NATALIZUMAB
     Indication: Multiple sclerosis
     Dosage: 1 INTRAVENOUS INFUSION OF 300 MG OF TYSABRI (NATALIZUMAB) EVERY 4 WEEKS
     Route: 050

REACTIONS (4)
  - Multiple sclerosis relapse [Unknown]
  - Anaphylactic shock [Unknown]
  - Incorrect drug administration rate [Unknown]
  - Anxiety [Unknown]

NARRATIVE: CASE EVENT DATE: 20231001
